FAERS Safety Report 8086161-4 (Version None)
Quarter: 2012Q1

REPORT INFORMATION
  Report Type: 
  Country: None (occurrence: None)
  Receive Date: 20120128
  Receipt Date: 20110426
  Transmission Date: 20120608
  Serious: No
  Sender: FDA-Public Use
  Company Number: US-ABBOTT-11P-163-0721766-00

PATIENT
  Age: 48 Year
  Sex: Female

DRUGS (10)
  1. METHOTREXATE [Concomitant]
     Indication: PRODUCT USED FOR UNKNOWN INDICATION
     Route: 058
  2. ZOLOFT [Concomitant]
     Indication: DEPRESSION
  3. HUMIRA [Suspect]
     Indication: CROHN'S DISEASE
     Dates: start: 20090401
  4. PREMARIN [Concomitant]
     Indication: HYSTERECTOMY
  5. LOVAZA [Concomitant]
     Indication: BLOOD TRIGLYCERIDES
  6. SYNTHROID [Concomitant]
     Indication: HYPOTHYROIDISM
  7. PRED FORTE [Concomitant]
     Indication: UVEITIS
     Dosage: EYE DROPS
     Route: 047
  8. FOLIC ACID [Concomitant]
     Indication: PRODUCT USED FOR UNKNOWN INDICATION
  9. CRESTOR [Concomitant]
     Indication: BLOOD CHOLESTEROL
  10. ZANAFLEX [Concomitant]
     Indication: MUSCLE SPASMS
     Dosage: AT BEDTIME

REACTIONS (1)
  - RASH [None]
